FAERS Safety Report 13993051 (Version 2)
Quarter: 2017Q4

REPORT INFORMATION
  Report Type: Spontaneous
  Country: US (occurrence: US)
  Receive Date: 20170920
  Receipt Date: 20171116
  Transmission Date: 20180321
  Serious: No
  Sender: FDA-Public Use
  Company Number: US-PFIZER INC-2017403735

PATIENT
  Age: 75 Year
  Sex: Female
  Weight: 53.3 kg

DRUGS (2)
  1. IBRANCE [Suspect]
     Active Substance: PALBOCICLIB
     Indication: BREAST CANCER
     Dosage: 125 MG, CYCLIC (DAY 1 TO DAY 21 EVERY 28 DAYS, DAILY)
     Route: 048
     Dates: start: 20170901, end: 20170906
  2. IBRANCE [Suspect]
     Active Substance: PALBOCICLIB
     Dosage: 75 MG, CYCLIC (DAILY FOR 1-21 DAYS EVERY 28 DAYS)
     Route: 048
     Dates: start: 20170901

REACTIONS (7)
  - White blood cell count decreased [Recovering/Resolving]
  - Rhinorrhoea [Unknown]
  - Neoplasm progression [Unknown]
  - Nasopharyngitis [Unknown]
  - Condition aggravated [Unknown]
  - Product use issue [Unknown]
  - Cough [Unknown]

NARRATIVE: CASE EVENT DATE: 20170907
